FAERS Safety Report 18073535 (Version 1)
Quarter: 2020Q3

REPORT INFORMATION
  Report Type: Spontaneous
  Country: US (occurrence: US)
  Receive Date: 20200727
  Receipt Date: 20200727
  Transmission Date: 20201103
  Serious: No
  Sender: FDA-Public Use
  Company Number: US-GILEAD-2020-0484675

PATIENT
  Sex: Male

DRUGS (3)
  1. SOFOSBUVIR;VELPATASVIR [Suspect]
     Active Substance: SOFOSBUVIR\VELPATASVIR
     Indication: CHRONIC HEPATITIS C
     Dosage: 1 DOSAGE FORM, QD
     Route: 048
     Dates: start: 202004, end: 202007
  2. NAPROXEN. [Concomitant]
     Active Substance: NAPROXEN
  3. ROBAXIN?750 [Concomitant]
     Active Substance: METHOCARBAMOL

REACTIONS (1)
  - Fatigue [Recovered/Resolved]
